FAERS Safety Report 16295645 (Version 1)
Quarter: 2019Q2

REPORT INFORMATION
  Report Type: Spontaneous
  Country: US (occurrence: US)
  Receive Date: 20190509
  Receipt Date: 20190509
  Transmission Date: 20190711
  Serious: Yes (Life-Threatening, Hospitalization, Disabling)
  Sender: FDA-Public Use
  Company Number: None

PATIENT
  Age: 46 Year
  Sex: Female
  Weight: 64.41 kg

DRUGS (7)
  1. ZOFRAN [Concomitant]
     Active Substance: ONDANSETRON HYDROCHLORIDE
  2. SUBOXONE(GOT ON TO GET OFF FOR YEARS OF EING ON PAIN KILLERS, I WAS NOT AND ADDICT, NOW THEY KEEP ME ON SUBOXONE DUE TO MY ANXIETY) [Concomitant]
  3. MIRENA [Suspect]
     Active Substance: LEVONORGESTREL
     Indication: CONTRACEPTION
  4. LEXAPRO [Concomitant]
     Active Substance: ESCITALOPRAM OXALATE
  5. KOLIPHIN [Concomitant]
  6. DYCLOMINE [Concomitant]
  7. BIOTION CAUSE MY HAIR FALLING PUT SO BAD [Concomitant]

REACTIONS (13)
  - Ovarian cyst [None]
  - Migraine [None]
  - Anxiety [None]
  - Depression [None]
  - Device dislocation [None]
  - Pain in extremity [None]
  - Embedded device [None]
  - Weight fluctuation [None]
  - Acne cystic [None]
  - Asthenia [None]
  - Alopecia [None]
  - Peripheral swelling [None]
  - Mood swings [None]

NARRATIVE: CASE EVENT DATE: 20190405
